FAERS Safety Report 4790516-0 (Version None)
Quarter: 2005Q3

REPORT INFORMATION
  Report Type: 
  Country: None (occurrence: None)
  Receive Date: 20050914
  Receipt Date: 20050103
  Transmission Date: 20060218
  Serious: Yes (Hospitalization)
  Sender: FDA-Public Use
  Company Number: 163-20785-05010026

PATIENT
  Age: 60 Year
  Sex: Female
  Weight: 101.7 kg

DRUGS (3)
  1. THALOMID [Suspect]
     Indication: RENAL CANCER METASTATIC
     Dosage: SEE IMAGE, ORAL
     Route: 048
     Dates: start: 20041206, end: 20041208
  2. THALOMID [Suspect]
     Indication: RENAL CANCER METASTATIC
     Dosage: SEE IMAGE, ORAL
     Route: 048
     Dates: start: 20041209, end: 20041223
  3. PROLEUKIN [Suspect]
     Indication: RENAL CANCER METASTATIC
     Dosage: 7 MIU/M^2 M-F X4 WEEKS, DAILY
     Dates: start: 20041213, end: 20041223

REACTIONS (2)
  - DYSPNOEA [None]
  - OEDEMA [None]
